FAERS Safety Report 4338027-0 (Version None)
Quarter: 2004Q3

REPORT INFORMATION
  Report Type: 
  Country: None (occurrence: None)
  Receive Date: 20040407
  Receipt Date: 20040326
  Transmission Date: 20050211
  Serious: Yes (Hospitalization)
  Sender: FDA-Public Use
  Company Number: 2004206088FR

PATIENT
  Age: 8 Year
  Sex: Female
  Weight: 34 kg

DRUGS (3)
  1. VANTIN [Suspect]
     Indication: EAR INFECTION
     Dates: start: 20040208, end: 20040216
  2. OFLOXACIN [Suspect]
     Indication: EAR INFECTION
     Dosage: 400 MG, DAILY, ORAL
     Route: 048
     Dates: start: 20040205, end: 20040212
  3. AUGMENTAN ORAL [Concomitant]

REACTIONS (13)
  - ANOREXIA [None]
  - BALANCE DISORDER [None]
  - C-REACTIVE PROTEIN INCREASED [None]
  - DIARRHOEA [None]
  - FOOD AVERSION [None]
  - GASTROINTESTINAL DISORDER [None]
  - INTRACRANIAL PRESSURE INCREASED [None]
  - MONOCYTE PERCENTAGE INCREASED [None]
  - MULTIPLE SCLEROSIS [None]
  - NAUSEA [None]
  - PARAESTHESIA [None]
  - RETINAL OEDEMA [None]
  - VITH NERVE PARALYSIS [None]
